FAERS Safety Report 21076995 (Version 1)
Quarter: 2022Q3

REPORT INFORMATION
  Report Type: Report from Study
  Country: US (occurrence: US)
  Receive Date: 20220713
  Receipt Date: 20220713
  Transmission Date: 20221026
  Serious: No
  Sender: FDA-Public Use
  Company Number: US-VANDA PHARMACEUTICALS, INC-2022TASUS005761

PATIENT
  Sex: Male

DRUGS (2)
  1. HETLIOZ [Suspect]
     Active Substance: TASIMELTEON
     Indication: Central-alveolar hypoventilation
     Dosage: 20 MILLIGRAM, QD, EVERY 24 HOURS 1 HOUR BEFORE BEDTIME , WITHOUT FOOD
     Route: 048
     Dates: start: 20211206, end: 20220515
  2. HETLIOZ [Suspect]
     Active Substance: TASIMELTEON
     Indication: Non-24-hour sleep-wake disorder

REACTIONS (3)
  - Nausea [Not Recovered/Not Resolved]
  - Sleep inertia [Not Recovered/Not Resolved]
  - Therapeutic product effect variable [Unknown]
